FAERS Safety Report 6805084-9 (Version None)
Quarter: 2010Q2

REPORT INFORMATION
  Report Type: 
  Country: None (occurrence: None)
  Receive Date: 20100628
  Receipt Date: 20070817
  Transmission Date: 20101027
  Serious: Yes (Other)
  Sender: FDA-Public Use
  Company Number: US-PFIZER INC-2007068736

PATIENT
  Sex: Male
  Weight: 95.3 kg

DRUGS (3)
  1. GEODON [Suspect]
     Dates: start: 20020101
  2. AMARYL [Concomitant]
  3. GLUCOPHAGE [Concomitant]

REACTIONS (1)
  - TARDIVE DYSKINESIA [None]
